FAERS Safety Report 10441387 (Version 1)
Quarter: 2014Q3

REPORT INFORMATION
  Report Type: Spontaneous
  Country: FR (occurrence: FR)
  Receive Date: 20140909
  Receipt Date: 20140909
  Transmission Date: 20150326
  Serious: Yes (Hospitalization, Other)
  Sender: FDA-Public Use
  Company Number: FR-TEVA-507528ISR

PATIENT
  Sex: Male

DRUGS (1)
  1. CIPROFLOXACINE TEVA 500 MG [Suspect]
     Active Substance: CIPROFLOXACIN
     Indication: URINARY TRACT INFECTION
     Dosage: 2 TABLET DAILY;
     Dates: start: 201311, end: 201312

REACTIONS (7)
  - Urinary tract obstruction [Unknown]
  - Haemorrhage urinary tract [Recovering/Resolving]
  - Productive cough [Unknown]
  - Constipation [Unknown]
  - Burning sensation [Unknown]
  - Hyperhidrosis [Unknown]
  - Chromaturia [Recovered/Resolved]

NARRATIVE: CASE EVENT DATE: 2013
